FAERS Safety Report 6450730-5 (Version None)
Quarter: 2009Q4

REPORT INFORMATION
  Report Type: 
  Country: None (occurrence: None)
  Receive Date: 20091120
  Receipt Date: 20091120
  Transmission Date: 20100525
  Serious: Yes (Other)
  Sender: FDA-Public Use
  Company Number: None

PATIENT
  Sex: Female

DRUGS (8)
  1. LEVAQUIN [Suspect]
     Indication: INFECTION
     Dosage: 500MG ONCE IV
     Route: 042
     Dates: start: 20091116, end: 20091116
  2. CEFTRIAXONE [Concomitant]
  3. PROTONIX [Concomitant]
  4. TAMIFLU [Concomitant]
  5. TESSALON [Concomitant]
  6. POTASSIUM CHLORIDE [Concomitant]
  7. TYLENOL (CAPLET) [Concomitant]
  8. DULCOLOX [Concomitant]

REACTIONS (2)
  - INJECTION SITE ERYTHEMA [None]
  - PRURITUS [None]
